FAERS Safety Report 6449900-1 (Version None)
Quarter: 2009Q4

REPORT INFORMATION
  Report Type: 
  Country: None (occurrence: None)
  Receive Date: 20091123
  Receipt Date: 20091112
  Transmission Date: 20100525
  Serious: Yes (Hospitalization)
  Sender: FDA-Public Use
  Company Number: US-BIOGENIDEC-2009BI001090

PATIENT
  Age: 45 Year
  Sex: Female
  Weight: 138 kg

DRUGS (7)
  1. TYSABRI [Suspect]
     Indication: MULTIPLE SCLEROSIS
     Route: 042
     Dates: start: 20071114
  2. LEXAPRO [Concomitant]
     Indication: DRUG USE FOR UNKNOWN INDICATION
     Route: 048
  3. AMANTADINE [Concomitant]
     Indication: DRUG USE FOR UNKNOWN INDICATION
     Route: 048
  4. DETROL [Concomitant]
     Indication: URINARY INCONTINENCE
     Route: 048
  5. SIMVASTATIN [Concomitant]
     Indication: HYPERLIPIDAEMIA
  6. TRIAMTERENE AND HYDROCHLOROTHIAZIDE [Concomitant]
     Indication: DRUG USE FOR UNKNOWN INDICATION
     Route: 048
  7. DILAUDID [Concomitant]
     Indication: PAIN

REACTIONS (10)
  - BLADDER PROLAPSE [None]
  - DECREASED APPETITE [None]
  - ENDOMETRIAL HYPERPLASIA [None]
  - MULTIPLE SCLEROSIS [None]
  - PARALYSIS [None]
  - POST PROCEDURAL COMPLICATION [None]
  - URETHRAL DISORDER [None]
  - URINARY INCONTINENCE [None]
  - VOMITING [None]
  - WOUND DEHISCENCE [None]
